FAERS Safety Report 7510262-X (Version None)
Quarter: 2011Q2

REPORT INFORMATION
  Report Type: 
  Country: None (occurrence: None)
  Receive Date: 20110527
  Receipt Date: 20100309
  Transmission Date: 20111010
  Serious: No
  Sender: FDA-Public Use
  Company Number: US-BAYER-201016251NA

PATIENT

DRUGS (1)
  1. AVELOX [Suspect]
     Route: 048

REACTIONS (3)
  - HYPERSENSITIVITY [None]
  - URTICARIA [None]
  - RASH MACULAR [None]
